FAERS Safety Report 6759290-2 (Version None)
Quarter: 2010Q2

REPORT INFORMATION
  Report Type: 
  Country: None (occurrence: None)
  Receive Date: 20100607
  Receipt Date: 20100526
  Transmission Date: 20101027
  Serious: Yes (Death)
  Sender: FDA-Public Use
  Company Number: ES-PFIZER INC-2010065763

PATIENT
  Age: 29 Year
  Sex: Male
  Weight: 84 kg

DRUGS (3)
  1. ZIPRASIDONE HCL [Suspect]
     Indication: SCHIZOPHRENIFORM DISORDER
     Dosage: 80MG DAILY
     Dates: start: 20070620
  2. LORAZEPAM [Concomitant]
     Dosage: UNK
     Dates: start: 20040127
  3. LORMETAZEPAM [Concomitant]
     Dosage: UNK
     Dates: start: 20040315

REACTIONS (1)
  - COMPLETED SUICIDE [None]
